FAERS Safety Report 19662856 (Version 10)
Quarter: 2023Q1

REPORT INFORMATION
  Report Type: Report from Study
  Country: TW (occurrence: None)
  Receive Date: 20210805
  Receipt Date: 20230203
  Transmission Date: 20230417
  Serious: Yes (Hospitalization)
  Sender: FDA-Public Use
  Company Number: TW-ROCHE-2880832

PATIENT
  Age: 48 Year
  Sex: Male
  Weight: 72.1 kg

DRUGS (23)
  1. ATEZOLIZUMAB [Suspect]
     Active Substance: ATEZOLIZUMAB
     Indication: Oesophageal cancer metastatic
     Dosage: DATE OF MOST RECENT DOSE OF ATEZOLIZUMAB (1200 MG) PRIOR TO AE: 26/JUL/2021
     Route: 041
     Dates: start: 20210412
  2. CISPLATIN [Suspect]
     Active Substance: CISPLATIN
     Indication: Oesophageal cancer metastatic
     Dosage: DATE OF MOST RECENT DOSE OF CISPLATIN (148 MG) PRIOR TO AE: 26/JUL/2021
     Route: 042
     Dates: start: 20210412
  3. FLUOROURACIL [Suspect]
     Active Substance: FLUOROURACIL
     Indication: Oesophageal cancer metastatic
     Dosage: DATE OF MOST RECENT DOSE OF 5-FLUOROURACIL 1850 MG PRIOR TO AE: 26/JUL/2021
     Route: 042
     Dates: start: 20210412
  4. TRIAMCINOLONE [Concomitant]
     Active Substance: TRIAMCINOLONE
     Indication: Stomatitis
     Route: 061
     Dates: start: 20210419
  5. FAMOTIDINE [Concomitant]
     Active Substance: FAMOTIDINE
     Indication: Prophylaxis
     Route: 048
     Dates: start: 20210412, end: 20210627
  6. FAMOTIDINE [Concomitant]
     Active Substance: FAMOTIDINE
     Route: 048
     Dates: start: 20210729, end: 20210801
  7. FAMOTIDINE [Concomitant]
     Active Substance: FAMOTIDINE
     Route: 048
     Dates: start: 20210517, end: 20210627
  8. DIPHENHYDRAMINE [Concomitant]
     Active Substance: DIPHENHYDRAMINE
     Indication: Premedication
     Route: 042
     Dates: start: 20210705, end: 20210708
  9. DIPHENHYDRAMINE [Concomitant]
     Active Substance: DIPHENHYDRAMINE
     Route: 042
     Dates: start: 20210726, end: 20210726
  10. PRIMPERAN [Concomitant]
     Active Substance: METOCLOPRAMIDE HYDROCHLORIDE
     Indication: Premedication
     Route: 042
     Dates: start: 20210705, end: 20210709
  11. PRIMPERAN [Concomitant]
     Active Substance: METOCLOPRAMIDE HYDROCHLORIDE
     Route: 042
     Dates: start: 20210726, end: 20210727
  12. AKYNZEO [Concomitant]
     Indication: Premedication
     Route: 048
     Dates: start: 20210705, end: 20210705
  13. AKYNZEO [Concomitant]
     Route: 048
     Dates: start: 20210726, end: 20210726
  14. FUROSEMIDE [Concomitant]
     Active Substance: FUROSEMIDE
     Indication: Prophylaxis
     Route: 042
     Dates: start: 20210706, end: 20210708
  15. ULTRACET [Concomitant]
     Active Substance: ACETAMINOPHEN\TRAMADOL HYDROCHLORIDE
     Indication: Tumour pain
     Route: 048
     Dates: start: 20210730, end: 20210806
  16. PIPERACILLIN [Concomitant]
     Active Substance: PIPERACILLIN
     Indication: Prophylaxis
     Route: 042
     Dates: start: 20210727, end: 20210730
  17. CINOLONE [CIPROFLOXACIN] [Concomitant]
     Indication: Infection prophylaxis
     Route: 048
     Dates: start: 20210731, end: 20210806
  18. SODIUM CHLORIDE [Concomitant]
     Active Substance: SODIUM CHLORIDE
     Indication: Blood creatinine increased
     Route: 042
     Dates: start: 20210729, end: 20210731
  19. SODIUM CHLORIDE [Concomitant]
     Active Substance: SODIUM CHLORIDE
     Route: 042
     Dates: start: 20210726, end: 20210729
  20. SODIUM CHLORIDE [Concomitant]
     Active Substance: SODIUM CHLORIDE
     Route: 045
     Dates: start: 20210705, end: 20210708
  21. METOCLOPRAMIDE [Concomitant]
     Active Substance: METOCLOPRAMIDE
     Route: 048
     Dates: start: 20210517, end: 20210627
  22. METOCLOPRAMIDE [Concomitant]
     Active Substance: METOCLOPRAMIDE
     Route: 042
     Dates: start: 20210726, end: 20210727
  23. SENNOSIDES A AND B [Concomitant]
     Active Substance: SENNOSIDES A AND B
     Route: 048
     Dates: start: 20210731, end: 20210731

REACTIONS (1)
  - Pyrexia [Recovered/Resolved]

NARRATIVE: CASE EVENT DATE: 20210727
